FAERS Safety Report 24444879 (Version 2)
Quarter: 2024Q4

REPORT INFORMATION
  Report Type: Report from Study
  Country: US (occurrence: US)
  Receive Date: 20241016
  Receipt Date: 20241017
  Transmission Date: 20250115
  Serious: No
  Sender: ROCHE
  Company Number: US-ROCHE-3058339

PATIENT
  Age: 27 Year
  Sex: Female

DRUGS (7)
  1. RITUXAN [Suspect]
     Active Substance: RITUXIMAB
     Indication: Polyneuropathy
     Dosage: INFUSE 375MG/M2 (600MG) INTRAVENOUSLY EVERY WEEK FOR 4 WEEK(S)
     Route: 042
     Dates: start: 20220314, end: 20220314
  2. RITUXAN [Suspect]
     Active Substance: RITUXIMAB
     Indication: Orthostatic hypotension
  3. RITUXAN [Suspect]
     Active Substance: RITUXIMAB
     Indication: Autonomic neuropathy
  4. GAZYVA [Suspect]
     Active Substance: OBINUTUZUMAB
     Indication: Sjogren^s syndrome
     Dosage: WEEK 0, 2, 24 , 26
     Route: 042
  5. GAZYVA [Suspect]
     Active Substance: OBINUTUZUMAB
     Indication: Autonomic neuropathy
  6. CELLCEPT [Suspect]
     Active Substance: MYCOPHENOLATE MOFETIL
     Indication: Sjogren^s syndrome
     Route: 065
  7. CELLCEPT [Suspect]
     Active Substance: MYCOPHENOLATE MOFETIL
     Indication: Autonomic neuropathy

REACTIONS (11)
  - Off label use [Unknown]
  - Rash [Unknown]
  - Pain in extremity [Unknown]
  - Drug hypersensitivity [Unknown]
  - Autonomic nervous system imbalance [Unknown]
  - Fatigue [Unknown]
  - Postural orthostatic tachycardia syndrome [Unknown]
  - Impaired gastric emptying [Unknown]
  - Pain [Unknown]
  - Small fibre neuropathy [Unknown]
  - Impaired work ability [Unknown]

NARRATIVE: CASE EVENT DATE: 20220316
